FAERS Safety Report 6239219 (Version 3)
Quarter: 2012Q4

REPORT INFORMATION
  Report Type: 
  Country: ES (occurrence: ES)
  Receive Date: 20070216
  Receipt Date: 20121210
  Transmission Date: 20130627
  Serious: Yes (Hospitalization)
  Sender: FDA-Public Use
  Company Number: ES-JNJFOC-20070203435

PATIENT
  Age: 40 Year
  Sex: Male

DRUGS (4)
  1. PARACETAMOL [Suspect]
  2. PARACETAMOL [Suspect]
     Indication: INFLUENZA LIKE ILLNESS
  3. IBUPROFEN [Suspect]
     Indication: INFLUENZA LIKE ILLNESS
  4. VALERIAN [Suspect]
     Indication: INFLUENZA LIKE ILLNESS

REACTIONS (1)
  - Hepatitis cholestatic [Unknown]
